FAERS Safety Report 14521571 (Version 4)
Quarter: 2018Q4

REPORT INFORMATION
  Report Type: Spontaneous
  Country: DE (occurrence: DE)
  Receive Date: 20180212
  Receipt Date: 20181011
  Transmission Date: 20190204
  Serious: Yes (Other)
  Sender: FDA-Public Use
  Company Number: DE-PFIZER INC-2018055966

PATIENT
  Age: 73 Year
  Sex: Female
  Weight: 67 kg

DRUGS (13)
  1. AMLODIPINE [Concomitant]
     Active Substance: AMLODIPINE BESYLATE
     Dosage: 10 MG, UNK
  2. PANTOPRAZOL [Concomitant]
     Active Substance: PANTOPRAZOLE SODIUM
     Dosage: 40 MG, UNK
  3. RAMIPRIL. [Concomitant]
     Active Substance: RAMIPRIL
     Dosage: 5 MG, UNK
  4. HEPARIN NATRIUM RATIOPHARM [Suspect]
     Active Substance: HEPARIN SODIUM
     Dosage: UNK
  5. SITAGLIPTIN [Concomitant]
     Active Substance: SITAGLIPTIN
     Dosage: 50 MG
  6. HEPARIN NATRIUM RATIOPHARM [Suspect]
     Active Substance: HEPARIN SODIUM
     Dosage: UNK
     Route: 065
     Dates: start: 20170814, end: 20170814
  7. SIMVASTATIN. [Concomitant]
     Active Substance: SIMVASTATIN
     Dosage: 40 MG, UNK
  8. TRANEXAMIC ACID. [Suspect]
     Active Substance: TRANEXAMIC ACID
     Dosage: 10 ML, UNK
     Dates: start: 20170814, end: 20170814
  9. HEPARIN NATRIUM RATIOPHARM [Suspect]
     Active Substance: HEPARIN SODIUM
     Dosage: UNK
  10. INSULIN GLARGINE [Concomitant]
     Active Substance: INSULIN GLARGINE
     Dosage: 300 IU, UNK
  11. TORASEMID [Concomitant]
     Active Substance: TORSEMIDE
     Dosage: 10 MG, UNK
  12. LEVOTHYROXIN [Concomitant]
     Active Substance: LEVOTHYROXINE
     Dosage: 25 UG, UNK
  13. NEBIVOLOL. [Concomitant]
     Active Substance: NEBIVOLOL
     Dosage: 5 MG, UNK

REACTIONS (3)
  - Circulatory collapse [Unknown]
  - Vasodilatation [Recovered/Resolved]
  - Blood pressure decreased [Unknown]

NARRATIVE: CASE EVENT DATE: 20170814
